FAERS Safety Report 18126912 (Version 10)
Quarter: 2023Q1

REPORT INFORMATION
  Report Type: Spontaneous
  Country: FR (occurrence: FR)
  Receive Date: 20200810
  Receipt Date: 20230221
  Transmission Date: 20230418
  Serious: Yes (Death, Life-Threatening, Hospitalization, Other)
  Sender: FDA-Public Use
  Company Number: FR-002147023-NVSC2020FR130044

PATIENT
  Age: 78 Year
  Sex: Male
  Weight: 70 kg

DRUGS (20)
  1. CARBOPLATIN [Suspect]
     Active Substance: CARBOPLATIN
     Indication: Non-small cell lung cancer
     Dosage: 440 MILLIGRAM, EVERY 3 WEEKS
     Route: 042
     Dates: start: 20191120, end: 20200122
  2. CARBOPLATIN [Suspect]
     Active Substance: CARBOPLATIN
     Dosage: 460 MILLIGRAM, Q3W
     Route: 042
     Dates: start: 20191120, end: 20200122
  3. PEMBROLIZUMAB [Suspect]
     Active Substance: PEMBROLIZUMAB
     Indication: Non-small cell lung cancer
     Dosage: 200 MILLIGRAM, EVERY 3 WEEKS
     Route: 042
     Dates: start: 20191120, end: 20200122
  4. PEMBROLIZUMAB [Suspect]
     Active Substance: PEMBROLIZUMAB
     Indication: Non-small cell lung cancer
     Dosage: 200 MILLIGRAM, 3 WEEK
     Route: 042
     Dates: start: 20191120, end: 20200122
  5. PEMETREXED DISODIUM [Suspect]
     Active Substance: PEMETREXED DISODIUM
     Indication: Non-small cell lung cancer
     Dosage: 500 MILLIGRAM/SQ. METER, EVERY 3 WEEKS
     Route: 042
     Dates: start: 20191120, end: 20200122
  6. PEMETREXED DISODIUM [Suspect]
     Active Substance: PEMETREXED DISODIUM
     Dosage: 900 MG/M2,EVERY THREE WEEKS,900 MILLIGRAM/SQ. METER, Q3W
     Route: 042
     Dates: start: 20191120, end: 20200122
  7. AMIKACIN SULFATE [Concomitant]
     Active Substance: AMIKACIN SULFATE
     Indication: Prophylaxis
     Dosage: UNK
     Route: 065
     Dates: start: 20200313
  8. CELLCEPT [Concomitant]
     Active Substance: MYCOPHENOLATE MOFETIL
     Indication: Necrotising myositis
     Dosage: UNK
     Route: 065
     Dates: start: 20200309
  9. COTRIMOXAZOLE [Concomitant]
     Active Substance: SULFAMETHOXAZOLE\TRIMETHOPRIM
     Indication: Infection prophylaxis
     Dosage: UNK
     Route: 065
     Dates: start: 20200224, end: 20200228
  10. CYANOCOBALAMIN [Concomitant]
     Active Substance: CYANOCOBALAMIN
     Indication: Product used for unknown indication
     Dosage: UNK
     Route: 065
     Dates: start: 20191113
  11. FOLIC ACID [Concomitant]
     Active Substance: FOLIC ACID
     Indication: Product used for unknown indication
     Dosage: UNK
     Route: 065
     Dates: start: 20191113
  12. MESTINON [Concomitant]
     Active Substance: PYRIDOSTIGMINE BROMIDE
     Indication: Product used for unknown indication
     Dosage: UNK
     Route: 065
     Dates: start: 20200301
  13. MYCAMINE [Concomitant]
     Active Substance: MICAFUNGIN SODIUM
     Indication: Prophylaxis
     Dosage: UNK
     Route: 065
     Dates: start: 20200313
  14. NOREPINEPHRINE [Concomitant]
     Active Substance: NOREPINEPHRINE
     Indication: Product used for unknown indication
     Dosage: UNK
     Route: 065
     Dates: start: 20200313
  15. PROSTIGMIN [Concomitant]
     Active Substance: NEOSTIGMINE BROMIDE
     Indication: Necrotising myositis
     Dosage: UNK
     Route: 065
     Dates: start: 20200201
  16. SODIUM CHLORIDE [Concomitant]
     Active Substance: SODIUM CHLORIDE
     Indication: Dry eye
     Dosage: UNK
     Route: 065
     Dates: start: 20200117
  17. SOLU-MEDROL [Concomitant]
     Active Substance: METHYLPREDNISOLONE SODIUM SUCCINATE
     Indication: Necrotising myositis
     Dosage: UNK
     Route: 065
     Dates: start: 20200122, end: 20200122
  18. SOLU-MEDROL [Concomitant]
     Active Substance: METHYLPREDNISOLONE SODIUM SUCCINATE
     Dosage: UNK
     Route: 065
     Dates: start: 20200201
  19. PIPERACILLIN SODIUM\TAZOBACTAM SODIUM [Concomitant]
     Active Substance: PIPERACILLIN SODIUM\TAZOBACTAM SODIUM
     Indication: Product used for unknown indication
     Dosage: UNK
     Route: 065
     Dates: start: 20200313
  20. LINEZOLID [Concomitant]
     Active Substance: LINEZOLID
     Indication: Product used for unknown indication
     Dosage: UNK
     Route: 065
     Dates: start: 20200313

REACTIONS (13)
  - Lung disorder [Fatal]
  - Necrotising myositis [Fatal]
  - Alpha haemolytic streptococcal infection [Fatal]
  - Shock [Fatal]
  - Respiratory distress [Fatal]
  - Serratia infection [Fatal]
  - Respiratory failure [Fatal]
  - Blood creatine phosphokinase abnormal [Fatal]
  - Aspartate aminotransferase abnormal [Fatal]
  - Dyspnoea [Fatal]
  - Alanine aminotransferase abnormal [Fatal]
  - Septic shock [Fatal]
  - Bundle branch block [Fatal]

NARRATIVE: CASE EVENT DATE: 20200121
